FAERS Safety Report 19663882 (Version 1)
Quarter: 2021Q3

REPORT INFORMATION
  Report Type: Report from Study
  Country: HK (occurrence: HK)
  Receive Date: 20210805
  Receipt Date: 20210805
  Transmission Date: 20211014
  Serious: Yes (Other)
  Sender: FDA-Public Use
  Company Number: HK-TEVA-2021-HK-1938219

PATIENT
  Age: 22 Year
  Sex: Female

DRUGS (3)
  1. FLUOXETINE [Suspect]
     Active Substance: FLUOXETINE HYDROCHLORIDE
     Indication: WEIGHT DECREASED
     Route: 065
  2. SIBUTRAMINE [Suspect]
     Active Substance: SIBUTRAMINE
     Indication: WEIGHT DECREASED
     Route: 065
  3. FUROSEMIDE. [Suspect]
     Active Substance: FUROSEMIDE
     Indication: WEIGHT DECREASED
     Route: 065

REACTIONS (5)
  - Off label use [Unknown]
  - Dyspnoea [Unknown]
  - Thyroid function test abnormal [Unknown]
  - Intentional product misuse [Unknown]
  - Toxicity to various agents [Unknown]
